FAERS Safety Report 22604943 (Version 2)
Quarter: 2023Q4

REPORT INFORMATION
  Report Type: Spontaneous
  Country: DE (occurrence: DE)
  Receive Date: 20230615
  Receipt Date: 20231125
  Transmission Date: 20240110
  Serious: Yes (Death, Hospitalization, Other)
  Sender: FDA-Public Use
  Company Number: None

PATIENT
  Age: 46 Year
  Sex: Female
  Weight: 120 kg

DRUGS (11)
  1. RISPERIDONE [Suspect]
     Active Substance: RISPERIDONE
     Indication: Schizoaffective disorder
     Dosage: UNKNOWN
     Route: 065
  2. TRIAMTERENE [Suspect]
     Active Substance: TRIAMTERENE
     Indication: Product used for unknown indication
     Dosage: DAILY DOSE: 50 MG MILLIGRAM(S) EVERY DAY
     Route: 048
  3. ZUCLOPENTHIXOL ACETATE [Suspect]
     Active Substance: ZUCLOPENTHIXOL ACETATE
     Indication: Schizoaffective disorder
     Dosage: EVERY 2 WEEKS
     Route: 065
  4. ZUCLOPENTHIXOL DECANOATE [Suspect]
     Active Substance: ZUCLOPENTHIXOL DECANOATE
     Indication: Product used for unknown indication
     Dosage: DAILY DOSE: 500 MG MILLIGRAM(S) EVERY 2 WEEK
     Route: 048
  5. BIPERIDEN [Suspect]
     Active Substance: BIPERIDEN
     Indication: Schizoaffective disorder
     Dosage: DAILY DOSE: 4 MG MILLIGRAM(S) EVERY DAY
     Route: 048
  6. ENALAPRIL [Suspect]
     Active Substance: ENALAPRIL
     Indication: Product used for unknown indication
     Dosage: DAILY DOSE: 5 MG MILLIGRAM(S) EVERY DAY
     Route: 048
  7. HALOPERIDOL [Suspect]
     Active Substance: HALOPERIDOL
     Indication: Schizoaffective disorder
     Dosage: UNKNOWN
     Route: 065
  8. HYDROCHLOROTHIAZIDE [Suspect]
     Active Substance: HYDROCHLOROTHIAZIDE
     Indication: Product used for unknown indication
     Dosage: DAILY DOSE: 25 MG MILLIGRAM(S) EVERY DAY
     Route: 048
  9. LEVOMEPROMAZINE [Suspect]
     Active Substance: LEVOMEPROMAZINE
     Indication: Schizoaffective disorder
     Dosage: UNKNOWN
     Route: 065
  10. LITHIUM [Suspect]
     Active Substance: LITHIUM
     Indication: Schizoaffective disorder
     Dosage: UNKNOWN
     Route: 065
  11. VALPROATE SODIUM [Suspect]
     Active Substance: VALPROATE SODIUM
     Indication: Schizoaffective disorder
     Dosage: UNKNOWN
     Route: 065

REACTIONS (20)
  - Disorientation [Fatal]
  - Megacolon [Fatal]
  - Dyspnoea [Unknown]
  - Respiratory failure [Fatal]
  - Ileus paralytic [Fatal]
  - Cardiac arrest [Fatal]
  - Hyponatraemia [Fatal]
  - Diarrhoea [Fatal]
  - Hypocalcaemia [Fatal]
  - Confusional state [Not Recovered/Not Resolved]
  - Fear of death [Not Recovered/Not Resolved]
  - Blood creatine phosphokinase increased [Fatal]
  - Cardio-respiratory arrest [Fatal]
  - Circulatory collapse [Fatal]
  - Cardiac failure [Fatal]
  - Hypochloraemia [Fatal]
  - Blood lactate dehydrogenase increased [Fatal]
  - Abdominal pain upper [Fatal]
  - C-reactive protein increased [Fatal]
  - Intestinal dilatation [Fatal]
